FAERS Safety Report 8852165 (Version 3)
Quarter: 2012Q4

REPORT INFORMATION
  Report Type: 
  Country: BE (occurrence: BE)
  Receive Date: 20121022
  Receipt Date: 20121217
  Transmission Date: 20130627
  Serious: Yes (Other)
  Sender: FDA-Public Use
  Company Number: BE-PFIZER INC-2012258600

PATIENT
  Age: 9 Year
  Sex: Male
  Weight: 27.6 kg

DRUGS (11)
  1. VFEND [Suspect]
     Indication: SCEDOSPORIUM INFECTION
     Dosage: 240 mg, 2x/day
     Route: 048
     Dates: start: 20120913, end: 20121004
  2. PULMOZYME [Concomitant]
     Dosage: UNK
     Route: 055
     Dates: start: 2008
  3. MUCOCLEAR [Concomitant]
     Dosage: UNK
     Route: 055
     Dates: start: 2010
  4. STAPHYCID [Concomitant]
     Dosage: 500 mg, 3x/day
     Route: 048
     Dates: start: 2008
  5. CREON [Concomitant]
     Dosage: 150 about 30 gelules, 1x/day
     Route: 048
     Dates: start: 2003
  6. URSOCHOL ^ZAMBON^ [Concomitant]
     Dosage: 150 mg, 1x/day
     Route: 048
     Dates: start: 2006
  7. LAXIDO [Concomitant]
     Dosage: UNK
     Route: 048
     Dates: start: 2011
  8. NASONEX [Concomitant]
     Dosage: UNK
     Route: 045
     Dates: start: 2011
  9. VITAMIN A [Concomitant]
     Dosage: 5000 IU, 1x/day
     Route: 048
  10. VITAMIN D [Concomitant]
     Dosage: 1000 IU, 1x/day
     Route: 048
  11. VITAMIN K [Concomitant]
     Dosage: 1 mg, 1x/day
     Route: 048

REACTIONS (2)
  - Stevens-Johnson syndrome [Recovered/Resolved]
  - Lip blister [Recovered/Resolved]
